APPROVED DRUG PRODUCT: MIFEPRISTONE
Active Ingredient: MIFEPRISTONE
Strength: 300MG
Dosage Form/Route: TABLET;ORAL
Application: A211436 | Product #001 | TE Code: AB
Applicant: TEVA PHARMACEUTICALS USA INC
Approved: Aug 3, 2020 | RLD: No | RS: No | Type: RX